FAERS Safety Report 8956336 (Version 2)
Quarter: 2013Q1

REPORT INFORMATION
  Report Type: Spontaneous
  Country: US (occurrence: US)
  Receive Date: 20121210
  Receipt Date: 20130109
  Transmission Date: 20140127
  Serious: Yes (Death)
  Sender: FDA-Public Use
  Company Number: US-SANOFI-AVENTIS-2012SA087892

PATIENT
  Age: 56 Year
  Sex: Female

DRUGS (8)
  1. AMBIEN [Suspect]
     Route: 048
  2. TRAMADOL [Suspect]
     Route: 065
  3. BUTALBITAL [Suspect]
     Route: 065
  4. CARISOPRODOL [Suspect]
     Route: 065
  5. TEMAZEPAM [Suspect]
     Route: 065
  6. HYDROCODONE [Suspect]
     Route: 065
  7. DIPHENHYDRAMINE [Suspect]
     Route: 065
  8. CITALOPRAM [Suspect]
     Route: 065

REACTIONS (2)
  - Toxicity to various agents [Fatal]
  - Completed suicide [Fatal]
